FAERS Safety Report 4293547-2 (Version None)
Quarter: 2004Q1

REPORT INFORMATION
  Report Type: 
  Country: None (occurrence: None)
  Receive Date: 20040212
  Receipt Date: 20030702
  Transmission Date: 20041129
  Serious: No
  Sender: FDA-Public Use
  Company Number: US-GLAXOSMITHKLINE-A0414887A

PATIENT
  Age: 47 Year
  Sex: Female

DRUGS (3)
  1. PAXIL [Suspect]
     Route: 048
  2. LOESTRIN 1.5/30 [Concomitant]
  3. MORPHINE [Concomitant]

REACTIONS (10)
  - ABNORMAL DREAMS [None]
  - DIZZINESS [None]
  - HAEMORRHAGIC DIATHESIS [None]
  - HYPERHIDROSIS [None]
  - HYPOAESTHESIA [None]
  - HYPOAESTHESIA ORAL [None]
  - INSOMNIA [None]
  - MYALGIA [None]
  - NAUSEA [None]
  - VISION BLURRED [None]
